FAERS Safety Report 5731000-7 (Version None)
Quarter: 2008Q2

REPORT INFORMATION
  Report Type: 
  Country: None (occurrence: None)
  Receive Date: 20080507
  Receipt Date: 20080429
  Transmission Date: 20081010
  Serious: Yes (Hospitalization, Other)
  Sender: FDA-Public Use
  Company Number: IL-ABBOTT-08P-082-0438928-00

PATIENT
  Age: 25 Year
  Sex: Male

DRUGS (3)
  1. HUMIRA [Suspect]
     Indication: CROHN'S DISEASE
     Dates: end: 20070101
  2. HUMIRA [Suspect]
  3. HUMIRA [Suspect]

REACTIONS (2)
  - ABSCESS [None]
  - LARGE INTESTINE PERFORATION [None]
